FAERS Safety Report 7712057-0 (Version None)
Quarter: 2011Q3

REPORT INFORMATION
  Report Type: 
  Country: None (occurrence: None)
  Receive Date: 20110826
  Receipt Date: 20110812
  Transmission Date: 20111222
  Serious: Yes (Hospitalization)
  Sender: FDA-Public Use
  Company Number: ES-JNJFOC-20110806404

PATIENT
  Age: 23 Year
  Sex: Female

DRUGS (7)
  1. CARBOCISTEINE [Concomitant]
  2. AMBROXOL [Concomitant]
  3. ACETAMINOPHEN [Suspect]
     Indication: HEADACHE
     Dosage: 3 DAYS
  4. ACETAMINOPHEN [Suspect]
  5. BENZOCAINE [Concomitant]
  6. ACETAMINOPHEN [Suspect]
  7. CHLORHEXIDINE GLUCONATE [Concomitant]

REACTIONS (3)
  - LIVER INJURY [None]
  - PYREXIA [None]
  - RASH [None]
